FAERS Safety Report 4331612-1 (Version None)
Quarter: 2004Q1

REPORT INFORMATION
  Report Type: 
  Country: None (occurrence: None)
  Receive Date: 20040331
  Receipt Date: 20040317
  Transmission Date: 20041129
  Serious: Yes (Life-Threatening, Hospitalization)
  Sender: FDA-Public Use
  Company Number: JP_040302723

PATIENT
  Age: 5 Year
  Sex: Male
  Weight: 17 kg

DRUGS (6)
  1. ONCOVIN [Suspect]
     Indication: CEREBELLAR TUMOUR
     Dosage: 1.1 MG OTHER
     Route: 050
     Dates: start: 20030521, end: 20040223
  2. NIDRAN (NIMUSTINE HYDROCHLORIDE) [Concomitant]
  3. PREDNISOLONE [Concomitant]
  4. FAMOTIDINE [Concomitant]
  5. BAKTAR [Concomitant]
  6. DIFLUCAN [Concomitant]

REACTIONS (10)
  - CONVULSION [None]
  - DIABETES INSIPIDUS [None]
  - HERPES ZOSTER [None]
  - HYPONATRAEMIA [None]
  - INAPPROPRIATE ANTIDIURETIC HORMONE SECRETION [None]
  - INFECTION [None]
  - NEUTROPHIL COUNT DECREASED [None]
  - OXYGEN SATURATION DECREASED [None]
  - RESPIRATORY ARREST [None]
  - WHITE BLOOD CELL COUNT DECREASED [None]
